FAERS Safety Report 5559501-5 (Version None)
Quarter: 2007Q4

REPORT INFORMATION
  Report Type: 
  Country: None (occurrence: None)
  Receive Date: 20071214
  Receipt Date: 20071003
  Transmission Date: 20080405
  Serious: No
  Sender: FDA-Public Use
  Company Number: US-ABBOTT-07P-163-0420058-00

PATIENT
  Age: 43 Year
  Sex: Male

DRUGS (2)
  1. HUMIRA [Suspect]
     Indication: DRUG USE FOR UNKNOWN INDICATION
     Dosage: SYRINGE
     Route: 058
     Dates: end: 20071003
  2. HUMIRA [Suspect]
     Route: 058
     Dates: start: 20071003

REACTIONS (2)
  - ACCIDENTAL EXPOSURE [None]
  - INJECTION SITE REACTION [None]
